FAERS Safety Report 6427870-X (Version None)
Quarter: 2009Q4

REPORT INFORMATION
  Report Type: 
  Country: None (occurrence: None)
  Receive Date: 20091102
  Receipt Date: 20091022
  Transmission Date: 20100525
  Serious: Yes (Hospitalization)
  Sender: FDA-Public Use
  Company Number: 2009-04434

PATIENT
  Age: 59 Year
  Sex: Female
  Weight: 76 kg

DRUGS (4)
  1. VELCADE [Suspect]
     Indication: MULTIPLE MYELOMA
     Dosage: 1.3 MG/M2, INTRAVENOUS
     Route: 042
     Dates: start: 20090421, end: 20091009
  2. DYTIDE H (BENZTHIAZIDE, TRIAMTERENE) [Concomitant]
  3. BISOPROLOL FUMARATE [Concomitant]
  4. ENALAPRIL MALEATE [Concomitant]

REACTIONS (1)
  - LYMPHANGITIS [None]
